FAERS Safety Report 9174754 (Version 2)
Quarter: 2013Q2

REPORT INFORMATION
  Report Type: Spontaneous
  Country: AU (occurrence: AU)
  Receive Date: 20130320
  Receipt Date: 20130419
  Transmission Date: 20140414
  Serious: Yes (Hospitalization)
  Sender: FDA-Public Use
  Company Number: AU-B.I. PHARMACEUTICALS,INC./RIDGEFIELD-2013-AU-00270AU

PATIENT
  Sex: 0

DRUGS (1)
  1. SIFROL [Suspect]

REACTIONS (2)
  - Condition aggravated [Unknown]
  - Drug dispensing error [Unknown]
